FAERS Safety Report 6424984-5 (Version None)
Quarter: 2009Q4

REPORT INFORMATION
  Report Type: 
  Country: None (occurrence: None)
  Receive Date: 20091029
  Receipt Date: 20091019
  Transmission Date: 20100525
  Serious: Yes (Hospitalization, Other)
  Sender: FDA-Public Use
  Company Number: JPI-P-008863

PATIENT
  Sex: Female

DRUGS (2)
  1. XYREM [Suspect]
     Indication: DRUG EXPOSURE DURING PREGNANCY
     Dosage: 4.5 GM (2.25 GM,2 IN 1 D), ORAL
     Route: 048
     Dates: start: 20090214
  2. XYREM [Suspect]
     Indication: DRUG EXPOSURE VIA BREAST MILK
     Dosage: 4.5 GM (2.25 GM,2 IN 1 D), ORAL
     Route: 048
     Dates: start: 20090214

REACTIONS (4)
  - DRUG EXPOSURE VIA BREAST MILK [None]
  - JAUNDICE NEONATAL [None]
  - MATERNAL DRUGS AFFECTING FOETUS [None]
  - PREMATURE BABY [None]
